FAERS Safety Report 25784618 (Version 4)
Quarter: 2025Q3

REPORT INFORMATION
  Report Type: Spontaneous
  Country: US (occurrence: US)
  Receive Date: 20250910
  Receipt Date: 20250919
  Transmission Date: 20251021
  Serious: Yes (Other)
  Sender: IPSEN BIOPHARMACEUTICALS, INC.
  Company Number: US-IPSEN Group, Research and Development-2025-22104

PATIENT
  Age: 28 Year
  Sex: Female

DRUGS (3)
  1. DYSPORT [Suspect]
     Active Substance: ABOBOTULINUMTOXINA
     Indication: Skin wrinkling
     Dates: start: 202411, end: 202411
  2. DYSPORT [Suspect]
     Active Substance: ABOBOTULINUMTOXINA
     Indication: Off label use
  3. HYALURONIC ACID [Suspect]
     Active Substance: HYALURONIC ACID
     Indication: Skin cosmetic procedure
     Dates: start: 202411, end: 202411

REACTIONS (21)
  - Neurodegenerative disorder [Unknown]
  - Injection site pain [Unknown]
  - Injection site inflammation [Unknown]
  - Sinus headache [Unknown]
  - Sensitive skin [Unknown]
  - Cognitive disorder [Unknown]
  - Epistaxis [Unknown]
  - Panic attack [Unknown]
  - Limb discomfort [Unknown]
  - Chest discomfort [Unknown]
  - Heart rate increased [Unknown]
  - Weight decreased [Unknown]
  - Asthenia [Unknown]
  - Hearing disability [Unknown]
  - Wrong technique in product usage process [Unknown]
  - Pruritus [Unknown]
  - Injection site haemorrhage [Unknown]
  - Lip disorder [Unknown]
  - Injection site swelling [Unknown]
  - Injection site scar [Unknown]
  - Off label use [Unknown]

NARRATIVE: CASE EVENT DATE: 20241101
